FAERS Safety Report 16600384 (Version 1)
Quarter: 2019Q3

REPORT INFORMATION
  Report Type: Spontaneous
  Country: US (occurrence: US)
  Receive Date: 20190720
  Receipt Date: 20190720
  Transmission Date: 20191004
  Serious: Yes (Other)
  Sender: FDA-Public Use
  Company Number: US-EMCURE PHARMACEUTICALS LTD-2019-EPL-0352

PATIENT
  Age: 54 Year
  Sex: Male

DRUGS (2)
  1. ACETAMINOPHEN. [Suspect]
     Active Substance: ACETAMINOPHEN
     Indication: FACIAL PAIN
  2. ACETAMINOPHEN. [Suspect]
     Active Substance: ACETAMINOPHEN
     Indication: RHINALGIA
     Dosage: DAILY INTRANASAL USE OF CRUSHED ACETAMINOPHEN TABLETS
     Route: 045

REACTIONS (3)
  - Sinusitis fungal [Unknown]
  - Nasal necrosis [Unknown]
  - Incorrect route of product administration [Unknown]
